FAERS Safety Report 8000631-6 (Version None)
Quarter: 2011Q4

REPORT INFORMATION
  Report Type: 
  Country: None (occurrence: None)
  Receive Date: 20111216
  Receipt Date: 20111207
  Transmission Date: 20120403
  Serious: Yes (Hospitalization)
  Sender: FDA-Public Use
  Company Number: WAES 1112USA00378

PATIENT
  Age: 59 Year
  Sex: Female

DRUGS (17)
  1. CARDIZEM [Concomitant]
  2. ACETAMINOPHEN [Concomitant]
  3. CANDESARTAN CILEXETIL [Concomitant]
  4. SITAGLIPTIN PHOSPHATE [Suspect]
     Indication: TYPE 2 DIABETES MELLITUS
     Dosage: PO
     Route: 048
     Dates: start: 20110322, end: 20111011
  5. LEFLUNOMIDE [Concomitant]
  6. DURIDE [Concomitant]
  7. PENMIX 10 [Concomitant]
  8. NORTRIPTYLINE HCL [Concomitant]
  9. OMEPRAZOLE [Concomitant]
  10. CODEINE [Concomitant]
  11. FOLIC ACID [Concomitant]
  12. ZOPICLONE [Concomitant]
  13. SIMVASTATIN [Concomitant]
  14. VENLAFAXINE HCL [Concomitant]
  15. ASPIRIN [Concomitant]
  16. ATENOLOL [Concomitant]
  17. METHOTREXATE [Concomitant]

REACTIONS (3)
  - PULMONARY FIBROSIS [None]
  - LOWER RESPIRATORY TRACT INFECTION [None]
  - VOMITING [None]
